FAERS Safety Report 9125496 (Version 1)
Quarter: 2013Q1

REPORT INFORMATION
  Report Type: Spontaneous
  Country: FR (occurrence: FR)
  Receive Date: 20130227
  Receipt Date: 20130227
  Transmission Date: 20140127
  Serious: Yes (Hospitalization)
  Sender: FDA-Public Use
  Company Number: FR-GLAXOSMITHKLINE-B0869571A

PATIENT
  Age: 44 Year
  Sex: Female

DRUGS (17)
  1. ZOPHREN [Suspect]
     Indication: PRODUCT USED FOR UNKNOWN INDICATION
     Route: 060
     Dates: start: 20130126, end: 20130130
  2. BACTRIM [Suspect]
     Indication: PRODUCT USED FOR UNKNOWN INDICATION
     Dosage: 400MG PER DAY
     Route: 048
     Dates: start: 20130114, end: 20130131
  3. TRIFLUCAN [Suspect]
     Indication: PRODUCT USED FOR UNKNOWN INDICATION
     Route: 048
     Dates: start: 20130125, end: 20130201
  4. RIFATER [Suspect]
     Indication: PRODUCT USED FOR UNKNOWN INDICATION
     Route: 048
     Dates: start: 20130115, end: 20130201
  5. INEXIUM [Suspect]
     Indication: PRODUCT USED FOR UNKNOWN INDICATION
     Route: 048
     Dates: start: 20130117, end: 20130129
  6. LOVENOX [Suspect]
     Indication: PRODUCT USED FOR UNKNOWN INDICATION
     Route: 058
     Dates: start: 20130116, end: 20130128
  7. TIORFAN [Suspect]
     Indication: PRODUCT USED FOR UNKNOWN INDICATION
     Route: 048
     Dates: start: 20130112, end: 20130128
  8. SMECTA [Suspect]
     Indication: PRODUCT USED FOR UNKNOWN INDICATION
     Route: 048
     Dates: start: 20130113, end: 20130128
  9. PARACETAMOL [Concomitant]
     Dates: start: 20130110
  10. ACUPAN [Concomitant]
     Dates: start: 20130112
  11. MAG 2 [Concomitant]
     Dates: start: 20130114
  12. KALEORID [Concomitant]
     Dates: start: 20130114
  13. ETHAMBUTOL [Concomitant]
     Dates: start: 20130115
  14. PHOSPHORUS [Concomitant]
     Dates: start: 20130115
  15. GAVISCON [Concomitant]
     Dates: start: 20130115
  16. MOTILIUM [Concomitant]
     Dates: start: 20130120
  17. ANTIRETROVIRAL MEDICATIONS [Concomitant]
     Indication: HIV INFECTION
     Dates: start: 20130129

REACTIONS (3)
  - Acute generalised exanthematous pustulosis [Recovered/Resolved]
  - Prurigo [Recovered/Resolved]
  - Skin disorder [Recovered/Resolved]
